FAERS Safety Report 5162575-7 (Version None)
Quarter: 2006Q4

REPORT INFORMATION
  Report Type: 
  Country: None (occurrence: None)
  Receive Date: 20061201
  Receipt Date: 20061120
  Transmission Date: 20070319
  Serious: Yes (Other)
  Sender: FDA-Public Use
  Company Number: 2006UW26214

PATIENT
  Age: 47 Year
  Sex: Male

DRUGS (3)
  1. PULMICORT [Suspect]
     Indication: ASTHMA
     Route: 055
  2. NEXIUM [Concomitant]
     Route: 048
  3. FLONASE [Concomitant]

REACTIONS (2)
  - ASTHMA [None]
  - DRUG INEFFECTIVE [None]
